FAERS Safety Report 9517295 (Version 1)
Quarter: 2013Q3

REPORT INFORMATION
  Report Type: Spontaneous
  Country: US (occurrence: US)
  Receive Date: 20130911
  Receipt Date: 20130911
  Transmission Date: 20140515
  Serious: No
  Sender: FDA-Public Use
  Company Number: US-ASTRAZENECA-2013SE56556

PATIENT
  Age: 38 Year
  Sex: Female

DRUGS (1)
  1. SYMBICORT [Suspect]
     Indication: ASTHMA
     Dosage: 160/4.5 MCG UNKNOWN
     Route: 055

REACTIONS (3)
  - Feeling jittery [Unknown]
  - Dizziness [Unknown]
  - Intentional drug misuse [Unknown]
